FAERS Safety Report 8652663 (Version 4)
Quarter: 2013Q1

REPORT INFORMATION
  Report Type: Report from Study
  Country: GB (occurrence: GB)
  Receive Date: 20120706
  Receipt Date: 20130117
  Transmission Date: 20140127
  Serious: Yes (Life-Threatening, Hospitalization)
  Sender: FDA-Public Use
  Company Number: GB-PFIZER INC-2011084010

PATIENT
  Age: 65 Year
  Sex: Female

DRUGS (7)
  1. DALTEPARIN SODIUM [Suspect]
     Indication: LUNG NEOPLASM MALIGNANT
     Dosage: 5000 IU, 1X/DAY
     Route: 058
     Dates: start: 20110406, end: 20110415
  2. CISPLATIN [Suspect]
     Dosage: 132 MG, UNK
     Route: 042
     Dates: start: 20110405, end: 20110405
  3. PEMETREXED [Suspect]
     Dosage: 875 MG, UNK
     Route: 042
     Dates: start: 20110405, end: 20110405
  4. CIPROFLOXACIN [Concomitant]
     Dosage: 250 MG, 2X/DAY
     Route: 048
     Dates: start: 201104
  5. FOLIC ACID [Concomitant]
     Dosage: 400 MG, UNK
     Route: 048
     Dates: start: 2011, end: 2011
  6. DOMPERIDONE [Concomitant]
     Dosage: 20 MG, 3X/DAY
     Route: 048
     Dates: start: 201104
  7. LANSOPRAZOLE [Concomitant]
     Dosage: 30 MG, UNK
     Route: 048

REACTIONS (3)
  - Sepsis [Recovered/Resolved]
  - Pyrexia [Recovered/Resolved]
  - Hypotension [Recovered/Resolved]
